FAERS Safety Report 20723676 (Version 30)
Quarter: 2024Q4

REPORT INFORMATION
  Report Type: Spontaneous
  Country: CA (occurrence: CA)
  Receive Date: 20220419
  Receipt Date: 20241212
  Transmission Date: 20250114
  Serious: Yes (Other)
  Sender: CELLTRION
  Company Number: CA-CELLTRION INC.-2021CA018375

PATIENT

DRUGS (36)
  1. INFLECTRA [Suspect]
     Active Substance: INFLIXIMAB-DYYB
     Indication: Crohn^s disease
     Dosage: 5 MG/KG,  0, 2, 6 WEEK DOSE THEN EVERY 8 WEEKS
     Route: 042
     Dates: start: 20211105
  2. INFLECTRA [Suspect]
     Active Substance: INFLIXIMAB-DYYB
     Dosage: 5 MG/KG, 0, 2, 6 WEEKS DOSE THEN EVERY 8 WEEKS
     Route: 042
     Dates: start: 20211118
  3. INFLECTRA [Suspect]
     Active Substance: INFLIXIMAB-DYYB
     Dosage: 5 MG/KG, 0, 2, 6 WEEKS DOSE THEN EVERY 8 WEEKS
     Route: 042
     Dates: start: 20211217
  4. INFLECTRA [Suspect]
     Active Substance: INFLIXIMAB-DYYB
     Dosage: 5 MG/KG, 0, 2, 6 WEEKS DOSE THEN EVERY 8 WEEKS
     Route: 042
     Dates: start: 20220211
  5. INFLECTRA [Suspect]
     Active Substance: INFLIXIMAB-DYYB
     Dosage: 5 MG/KG, 0, 2, 6 WEEKS DOSE THEN EVERY 8 WEEKS
     Route: 042
     Dates: start: 20220406
  6. INFLECTRA [Suspect]
     Active Substance: INFLIXIMAB-DYYB
     Dosage: 5 MG/KG, 0, 2, 6 WEEKS DOSE THEN EVERY 8 WEEKS
     Route: 042
     Dates: start: 20220406
  7. INFLECTRA [Suspect]
     Active Substance: INFLIXIMAB-DYYB
     Dosage: 5 MG/KG, 0, 2, 6 WEEKS DOSE THEN EVERY 8 WEEKS
     Route: 042
     Dates: start: 20220601
  8. INFLECTRA [Suspect]
     Active Substance: INFLIXIMAB-DYYB
     Dosage: 5 MG/KG, 0, 2, 6 WEEKS DOSE THEN EVERY 8 WEEKS
     Route: 042
     Dates: start: 20220727
  9. INFLECTRA [Suspect]
     Active Substance: INFLIXIMAB-DYYB
     Dosage: 5 MG/KG, 0, 2, 6 WEEKS DOSE THEN EVERY 8 WEEKS
     Route: 042
     Dates: start: 20220727
  10. INFLECTRA [Suspect]
     Active Substance: INFLIXIMAB-DYYB
     Dosage: 5 MG/KG, 0, 2, 6 WEEKS DOSE THEN EVERY 8 WEEKS
     Route: 042
     Dates: start: 20220922
  11. INFLECTRA [Suspect]
     Active Substance: INFLIXIMAB-DYYB
     Dosage: 5 MG/KG, STAT DOSE THEN MAINTENANCE TO BE CONFIRMED (RESCUE DOSE)
     Route: 042
     Dates: start: 20221019, end: 20221019
  12. INFLECTRA [Suspect]
     Active Substance: INFLIXIMAB-DYYB
     Dosage: 5 MG/KG AFTER 6 WEEKS
     Route: 042
     Dates: start: 20221130
  13. INFLECTRA [Suspect]
     Active Substance: INFLIXIMAB-DYYB
     Dosage: 5 MG/KG EVERY 6 WEEK
     Route: 042
     Dates: start: 20230112
  14. INFLECTRA [Suspect]
     Active Substance: INFLIXIMAB-DYYB
     Dosage: 5 MG/KG EVERY 6 WEEK
     Route: 042
     Dates: start: 20230223
  15. INFLECTRA [Suspect]
     Active Substance: INFLIXIMAB-DYYB
     Dosage: 5 MG/KG EVERY 6 WEEK
     Route: 042
     Dates: start: 20230405
  16. INFLECTRA [Suspect]
     Active Substance: INFLIXIMAB-DYYB
     Dosage: 340 MG EVERY 6 WEEKS
     Route: 042
     Dates: start: 20230519
  17. INFLECTRA [Suspect]
     Active Substance: INFLIXIMAB-DYYB
     Dosage: 340 MG AFTER 10 WEEKS AND 3 DAYS (PRESCRIBED 5MG/KG, EVERY 6 WEEKS)
     Route: 042
     Dates: start: 20230731
  18. INFLECTRA [Suspect]
     Active Substance: INFLIXIMAB-DYYB
     Dosage: 345 MG AFTER 6 WEEKS AND 1 DAY
     Route: 042
     Dates: start: 20230912
  19. INFLECTRA [Suspect]
     Active Substance: INFLIXIMAB-DYYB
     Dosage: 345 MG EVERY 6 WEEKS
     Route: 042
     Dates: start: 20231025
  20. INFLECTRA [Suspect]
     Active Substance: INFLIXIMAB-DYYB
     Dosage: 5 MG/KG EVERY 6 WEEKS
     Route: 042
     Dates: start: 20231206
  21. INFLECTRA [Suspect]
     Active Substance: INFLIXIMAB-DYYB
     Dosage: 500 MG (7.5 MG/KG) AT WEEK 0, 2 AND 6, THEN EVERY 6 WEEKS (1 DF)), WEEK 0 OF REINDUCTION
     Route: 042
     Dates: start: 20240104
  22. INFLECTRA [Suspect]
     Active Substance: INFLIXIMAB-DYYB
     Dosage: 510 MG (7.5 MG/KG) AFTER 1 WEEK AND 5 DAYS (PRESCRIBED WEEK 2)
     Route: 042
     Dates: start: 20240116
  23. INFLECTRA [Suspect]
     Active Substance: INFLIXIMAB-DYYB
     Dosage: 517.5 MG (7.5 MG/KG) AFTER 4 WEEKS AND 1 DAY
     Route: 042
     Dates: start: 20240214
  24. INFLECTRA [Suspect]
     Active Substance: INFLIXIMAB-DYYB
     Dosage: 510 MG (7.5MG/KG) AFTER 6 WEEKS AND 1 DAY (PRESCRIBED EVERY 6 WEEKS)
     Route: 042
     Dates: start: 20240328
  25. INFLECTRA [Suspect]
     Active Substance: INFLIXIMAB-DYYB
     Dosage: 518 MG (7.5MG/KG) AFTER 6 WEEKS
     Route: 042
     Dates: start: 20240509
  26. INFLECTRA [Suspect]
     Active Substance: INFLIXIMAB-DYYB
     Dosage: 495 MG (7.5MG/KG) EVERY 6 WEEKS
     Route: 042
     Dates: start: 20240620
  27. INFLECTRA [Suspect]
     Active Substance: INFLIXIMAB-DYYB
     Dosage: 7.5MG/KG AT WEEK 0, 2 AND 6, THEN EVERY 6 WEEKS (1DF)
     Route: 042
     Dates: start: 20240801
  28. INFLECTRA [Suspect]
     Active Substance: INFLIXIMAB-DYYB
     Dosage: 487.5 MG AFTER 6 WEEKS (7.5MG/KG AT WEEK 0, 2 AND 6, THEN EVERY 6 WEEKS)
     Route: 042
     Dates: start: 20240912
  29. INFLECTRA [Suspect]
     Active Substance: INFLIXIMAB-DYYB
     Dosage: 495 MG, 6 WEEKS (EVERY 6 WEEKS)
     Route: 042
     Dates: start: 20241024
  30. INFLECTRA [Suspect]
     Active Substance: INFLIXIMAB-DYYB
     Dosage: 487.5 MG AFTER 5 WEEKS AND 4 DAYS (PRESCRIBED 7.5MG/KG AT WEEK 0, 2 AND 6, THEN EVERY 6 WEEKS)
     Route: 042
     Dates: start: 20241203
  31. COVID-19 VACCINE [Concomitant]
     Indication: COVID-19 immunisation
     Dosage: DOSE NUMBER UNKNOWN, SINGLE
     Dates: start: 20231108, end: 20231108
  32. INFLUENZA VIRUS VACCINE [Concomitant]
     Active Substance: INFLUENZA VIRUS VACCINE
     Indication: Influenza immunisation
     Dosage: DOSE NUMBER UNKNOWN, SINGLE
     Dates: start: 20231108, end: 20231108
  33. IRON [Concomitant]
     Active Substance: IRON
     Dosage: 1 DF
     Route: 065
  34. MAGNESIUM [Concomitant]
     Active Substance: MAGNESIUM
     Dosage: UNK
  35. VITAMIN B12 [Concomitant]
     Active Substance: CYANOCOBALAMIN
     Dosage: 1 DF
     Route: 065
  36. CHOLECALCIFEROL [Concomitant]
     Active Substance: CHOLECALCIFEROL
     Dosage: 1 DF, DOSAGE UNKNOWN
     Route: 065

REACTIONS (39)
  - Condition aggravated [Not Recovered/Not Resolved]
  - Uveitis [Recovered/Resolved]
  - Cataract [Unknown]
  - Osteoarthritis [Not Recovered/Not Resolved]
  - Movement disorder [Not Recovered/Not Resolved]
  - Pain in extremity [Not Recovered/Not Resolved]
  - Grip strength decreased [Not Recovered/Not Resolved]
  - Arthralgia [Recovered/Resolved]
  - Peripheral swelling [Not Recovered/Not Resolved]
  - Drug level decreased [Unknown]
  - Abdominal distension [Not Recovered/Not Resolved]
  - Decreased activity [Not Recovered/Not Resolved]
  - Sleep talking [Unknown]
  - Sleep disorder [Unknown]
  - Anal incontinence [Not Recovered/Not Resolved]
  - Vision blurred [Not Recovered/Not Resolved]
  - Nightmare [Not Recovered/Not Resolved]
  - Limb injury [Recovered/Resolved]
  - Defaecation urgency [Not Recovered/Not Resolved]
  - Arthritis [Not Recovered/Not Resolved]
  - Irritable bowel syndrome [Unknown]
  - Therapeutic response shortened [Unknown]
  - Condition aggravated [Recovered/Resolved]
  - Drug specific antibody present [Unknown]
  - Abdominal pain upper [Not Recovered/Not Resolved]
  - Alopecia [Not Recovered/Not Resolved]
  - Back pain [Not Recovered/Not Resolved]
  - Constipation [Not Recovered/Not Resolved]
  - Dizziness [Not Recovered/Not Resolved]
  - Fatigue [Not Recovered/Not Resolved]
  - Hypotension [Not Recovered/Not Resolved]
  - Pruritus [Recovering/Resolving]
  - Urticaria [Not Recovered/Not Resolved]
  - Labile blood pressure [Not Recovered/Not Resolved]
  - Wound infection [Recovered/Resolved]
  - Localised infection [Recovered/Resolved]
  - Dizziness [Recovered/Resolved]
  - Diarrhoea [Unknown]
  - Off label use [Unknown]

NARRATIVE: CASE EVENT DATE: 20211217
